FAERS Safety Report 19443327 (Version 3)
Quarter: 2022Q1

REPORT INFORMATION
  Report Type: Report from Study
  Country: US (occurrence: US)
  Receive Date: 20210621
  Receipt Date: 20220206
  Transmission Date: 20220424
  Serious: Yes (Congenital Anomaly)
  Sender: FDA-Public Use
  Company Number: US-NOVARTISTESTPH-NVSC2021US129697

PATIENT
  Sex: Male

DRUGS (1)
  1. ENTRESTO [Suspect]
     Active Substance: SACUBITRIL\VALSARTAN
     Indication: Product used for unknown indication
     Dosage: 0.5 DF (HALF A TABLET IS IN THE MORNING AND HALF TABLET IN THE EVENING), BID
     Route: 048
     Dates: start: 202101

REACTIONS (3)
  - Congenital anomaly [Unknown]
  - Sleep apnoea syndrome [Unknown]
  - Wrong technique in product usage process [Not Recovered/Not Resolved]
